FAERS Safety Report 17964518 (Version 2)
Quarter: 2020Q4

REPORT INFORMATION
  Report Type: Spontaneous
  Country: US (occurrence: US)
  Receive Date: 20200630
  Receipt Date: 20201123
  Transmission Date: 20210113
  Serious: Yes (Hospitalization)
  Sender: FDA-Public Use
  Company Number: US-SA-2020SA166889

PATIENT

DRUGS (1)
  1. DUPIXENT [Suspect]
     Active Substance: DUPILUMAB
     Dosage: 300 MG, OTHER
     Route: 058
     Dates: start: 202001

REACTIONS (3)
  - Joint swelling [Unknown]
  - Osteoarthritis [Unknown]
  - Rash macular [Unknown]

NARRATIVE: CASE EVENT DATE: 20200617
